FAERS Safety Report 23278325 (Version 1)
Quarter: 2023Q4

REPORT INFORMATION
  Report Type: Spontaneous
  Country: None (occurrence: DE)
  Receive Date: 20231208
  Receipt Date: 20231208
  Transmission Date: 20240109
  Serious: Yes (Other)
  Sender: FDA-Public Use
  Company Number: DE-Ascend Therapeutics US, LLC-2149151

PATIENT
  Age: 45 Year
  Sex: Male

DRUGS (2)
  1. ANDROGEL 1% [Suspect]
     Active Substance: TESTOSTERONE
     Indication: Fatigue
     Route: 062
  2. TESTOSTERONE [Suspect]
     Active Substance: TESTOSTERONE
     Route: 062

REACTIONS (4)
  - Osteonecrosis [Recovered/Resolved]
  - Arthralgia [Unknown]
  - Oedema [Unknown]
  - Polycythaemia [Unknown]
